FAERS Safety Report 8346260 (Version 5)
Quarter: 2013Q4

REPORT INFORMATION
  Report Type: Report from Study
  Country: FR (occurrence: FR)
  Receive Date: 20120120
  Receipt Date: 20131211
  Transmission Date: 20140711
  Serious: Yes (Death, Life-Threatening, Hospitalization, Other)
  Sender: FDA-Public Use
  Company Number: FR-TEVA-2011003486

PATIENT
  Age: 60 Year
  Sex: Male
  Weight: 75 kg

DRUGS (2)
  1. BENDAMUSTINE [Suspect]
     Indication: CHRONIC LYMPHOCYTIC LEUKAEMIA
     Dosage: 170.1 MILLIGRAM DAILY; DAYS 1 AND 2 IN 4 WEEK CYCLE-2 DAYS IN 28 DAY CYCLE
     Route: 042
     Dates: start: 20110511, end: 20110512
  2. RITUXIMAB [Suspect]
     Indication: CHRONIC LYMPHOCYTIC LEUKAEMIA
     Dosage: DAY 1, CYCLE 1
     Route: 042
     Dates: start: 20110511, end: 20110511

REACTIONS (2)
  - Septic shock [Fatal]
  - Pancytopenia [Not Recovered/Not Resolved]
